FAERS Safety Report 10279945 (Version 1)
Quarter: 2014Q3

REPORT INFORMATION
  Report Type: Spontaneous
  Country: US (occurrence: None)
  Receive Date: 20140701
  Receipt Date: 20140701
  Transmission Date: 20150326
  Serious: Yes (Disabling)
  Sender: FDA-Public Use
  Company Number: None

PATIENT
  Age: 80 Year
  Sex: Male
  Weight: 99.79 kg

DRUGS (3)
  1. LISINOPRIL. [Concomitant]
     Active Substance: LISINOPRIL
  2. COUMADIN [Concomitant]
     Active Substance: WARFARIN SODIUM
  3. AMIODARONE [Suspect]
     Active Substance: AMIODARONE
     Indication: ARRHYTHMIA
     Dosage: STRENGTH 200 MG TABLET  1/2 TABLET  ONCE DAILY BEFORE DINNER BY MOUTH
     Route: 048
     Dates: start: 20101005, end: 20131010

REACTIONS (6)
  - Paraesthesia [None]
  - Hypoaesthesia [None]
  - Feeling hot [None]
  - Swelling [None]
  - Insomnia [None]
  - Movement disorder [None]

NARRATIVE: CASE EVENT DATE: 2011
